FAERS Safety Report 9148812 (Version 1)
Quarter: 2013Q1

REPORT INFORMATION
  Report Type: Spontaneous
  Country: US (occurrence: None)
  Receive Date: 20130227
  Receipt Date: 20130227
  Transmission Date: 20140127
  Serious: Yes (Hospitalization, Other)
  Sender: FDA-Public Use
  Company Number: None

PATIENT
  Age: 20 Year
  Sex: Female
  Weight: 78 kg

DRUGS (4)
  1. VANCOMYCIN [Suspect]
     Indication: CELLULITIS
     Dosage: 1250 MG 124H IV
     Route: 042
     Dates: start: 20121115, end: 20121117
  2. VANCOMYCIN [Suspect]
     Indication: NECROTISING FASCIITIS
     Dosage: 1250 MG 124H IV
     Route: 042
     Dates: start: 20121115, end: 20121117
  3. VANCOMYCIN [Suspect]
     Indication: CELLULITIS
     Dosage: 1250 MG 124H IV
     Route: 042
     Dates: start: 20121118, end: 20121118
  4. VANCOMYCIN [Suspect]
     Indication: NECROTISING FASCIITIS
     Dosage: 1250 MG 124H IV
     Route: 042
     Dates: start: 20121118, end: 20121118

REACTIONS (2)
  - Renal failure acute [None]
  - Haemodialysis [None]
